FAERS Safety Report 10230602 (Version 1)
Quarter: 2014Q2

REPORT INFORMATION
  Report Type: Spontaneous
  Country: JP (occurrence: JP)
  Receive Date: 20140611
  Receipt Date: 20140611
  Transmission Date: 20141212
  Serious: Yes (Disabling, Other)
  Sender: FDA-Public Use
  Company Number: JP-WATSON-2014-12001

PATIENT
  Age: 23 Year
  Sex: Female
  Weight: 40 kg

DRUGS (2)
  1. TACROLIMUS (UNKNOWN) [Suspect]
     Indication: COLITIS ULCERATIVE
     Dosage: 0.05 MG/KG, BID
     Route: 065
  2. PREDNISOLONE [Concomitant]
     Indication: COLITIS ULCERATIVE
     Dosage: 40 MG, DAILY
     Route: 042

REACTIONS (1)
  - Post transplant distal limb syndrome [Recovering/Resolving]
